FAERS Safety Report 23468428 (Version 1)
Quarter: 2024Q1

REPORT INFORMATION
  Report Type: Spontaneous
  Country: CN (occurrence: CN)
  Receive Date: 20240202
  Receipt Date: 20240202
  Transmission Date: 20240410
  Serious: Yes (Hospitalization, Other)
  Sender: FDA-Public Use
  Company Number: CN-HALEON-CNCH2024APC005944

PATIENT

DRUGS (3)
  1. IBUPROFEN [Suspect]
     Active Substance: IBUPROFEN
     Indication: Osteoarthritis
     Dosage: (SPECIFICATIONS PER PILL 0.4G), 0.8G SECOND RATE, I SECOND RATE
     Route: 048
  2. IBUPROFEN [Suspect]
     Active Substance: IBUPROFEN
     Indication: Pain
  3. LEVAMLODIPINE BESYLATE TABLETS [Concomitant]
     Indication: Hypertension
     Dosage: UNK
     Route: 048

REACTIONS (17)
  - Abdominal distension [Recovering/Resolving]
  - Large intestinal ulcer [Recovering/Resolving]
  - Gastric ulcer [Recovering/Resolving]
  - Gastrointestinal tract mucosal pigmentation [Recovering/Resolving]
  - Dyschezia [Recovering/Resolving]
  - Diarrhoea [Recovering/Resolving]
  - Abdominal distension [Recovering/Resolving]
  - Flatulence [Recovering/Resolving]
  - Decreased appetite [Recovering/Resolving]
  - Weight decreased [Recovering/Resolving]
  - Abdominal tenderness [Recovering/Resolving]
  - Lymphadenopathy [Recovering/Resolving]
  - Inflammation [Recovering/Resolving]
  - Oedema mucosal [Recovering/Resolving]
  - Dysplasia [Recovering/Resolving]
  - Mucosal inflammation [Recovering/Resolving]
  - Overdose [Unknown]
